FAERS Safety Report 18695847 (Version 1)
Quarter: 2021Q1

REPORT INFORMATION
  Report Type: Report from Study
  Country: US (occurrence: US)
  Receive Date: 20210104
  Receipt Date: 20210104
  Transmission Date: 20210419
  Serious: Yes (Hospitalization, Other)
  Sender: FDA-Public Use
  Company Number: US-GILEAD-2020-0510718

PATIENT
  Age: 44 Year
  Sex: Male

DRUGS (25)
  1. MAXIPIME [Concomitant]
     Active Substance: CEFEPIME HYDROCHLORIDE
  2. VORICONAZOLE. [Concomitant]
     Active Substance: VORICONAZOLE
  3. COREG [Concomitant]
     Active Substance: CARVEDILOL
  4. COMPLETE  FORMULATION [Concomitant]
  5. LEVAQUIN [Concomitant]
     Active Substance: LEVOFLOXACIN
     Dosage: UNK
  6. NEXIUM [Concomitant]
     Active Substance: ESOMEPRAZOLE MAGNESIUM
     Indication: CYSTIC FIBROSIS
     Dosage: UNK
  7. ZENPEP [Concomitant]
     Active Substance: PANCRELIPASE AMYLASE\PANCRELIPASE LIPASE\PANCRELIPASE PROTEASE
  8. IPRATROPIUM [Concomitant]
     Active Substance: IPRATROPIUM
  9. ADVAIR HFA [Concomitant]
     Active Substance: FLUTICASONE PROPIONATE\SALMETEROL XINAFOATE
  10. MYCOPHENOLATE MOFETIL. [Concomitant]
     Active Substance: MYCOPHENOLATE MOFETIL
  11. NORVASC [Concomitant]
     Active Substance: AMLODIPINE BESYLATE
  12. ZITHROMAX [Concomitant]
     Active Substance: AZITHROMYCIN DIHYDRATE
  13. TACROLIMUS. [Concomitant]
     Active Substance: TACROLIMUS
  14. HUMALOG [Concomitant]
     Active Substance: INSULIN LISPRO
  15. CETIRIZINE HYDROCHLORIDE. [Concomitant]
     Active Substance: CETIRIZINE HYDROCHLORIDE
  16. SINGULAIR [Concomitant]
     Active Substance: MONTELUKAST SODIUM
  17. LANTUS [Concomitant]
     Active Substance: INSULIN GLARGINE
  18. ACETYLCYSTEINE. [Concomitant]
     Active Substance: ACETYLCYSTEINE
  19. DAPSONE. [Concomitant]
     Active Substance: DAPSONE
  20. CALTRATE D [CALCIUM;COLECALCIFEROL] [Concomitant]
  21. FLONASE [Concomitant]
     Active Substance: FLUTICASONE PROPIONATE
  22. AZTREONAM LYSINE [Suspect]
     Active Substance: AZTREONAM LYSINE
     Indication: CYSTIC FIBROSIS
     Dosage: 75 MG, TID FOR 1 MONTH ON AND THEN 1 MONTH OFF
     Route: 055
  23. PULMOZYME [Concomitant]
     Active Substance: DORNASE ALFA
     Dosage: PULMOZYME 1MG/ML
  24. VALACYCLOVIR [Concomitant]
     Active Substance: VALACYCLOVIR HYDROCHLORIDE
  25. PREDNISONE. [Concomitant]
     Active Substance: PREDNISONE

REACTIONS (3)
  - Infection [Unknown]
  - Cystic fibrosis [Unknown]
  - Malaise [Not Recovered/Not Resolved]

NARRATIVE: CASE EVENT DATE: 202012
